FAERS Safety Report 8772750 (Version 4)
Quarter: 2012Q4

REPORT INFORMATION
  Report Type: 
  Country: US (occurrence: US)
  Receive Date: 20120907
  Receipt Date: 20121114
  Transmission Date: 20130627
  Serious: No
  Sender: FDA-Public Use
  Company Number: US-PFIZER INC-2012219224

PATIENT
  Age: 75 Year
  Sex: Female
  Weight: 58.96 kg

DRUGS (3)
  1. TYGACIL [Suspect]
     Indication: INFECTION
     Dosage: twice daily
     Route: 042
     Dates: start: 20080808, end: 20080813
  2. CEFTRIAXONE [Concomitant]
  3. LEVOFLOXACIN [Concomitant]

REACTIONS (10)
  - Drug hypersensitivity [Unknown]
  - Hypertension [Unknown]
  - Nausea [Recovered/Resolved]
  - Vomiting [Unknown]
  - Asthenia [Unknown]
  - Pallor [Unknown]
  - Headache [Unknown]
  - Abdominal discomfort [Unknown]
  - Constipation [Unknown]
  - Dizziness [Unknown]
